FAERS Safety Report 19441798 (Version 2)
Quarter: 2021Q2

REPORT INFORMATION
  Report Type: Spontaneous
  Country: DE (occurrence: DE)
  Receive Date: 20210621
  Receipt Date: 20210629
  Transmission Date: 20210717
  Serious: Yes (Other)
  Sender: FDA-Public Use
  Company Number: DE-ACCORD-228771

PATIENT
  Sex: Female

DRUGS (3)
  1. FOSTER [Concomitant]
     Active Substance: BECLOMETHASONE\FORMOTEROL
     Dosage: ONE STROKE IN THE MORNING AND IN THE EVENING
     Route: 055
  2. EZETIMIBE. [Suspect]
     Active Substance: EZETIMIBE
     Indication: BLOOD CHOLESTEROL INCREASED
     Dosage: 1 TABLET EVERY EVENING
     Dates: start: 2020, end: 2021
  3. LEVOTHYROXINE. [Concomitant]
     Active Substance: LEVOTHYROXINE
     Dosage: 1 TABLET IN THE MORNING ON AN EMPTY STOMACH FOR ABOUT 40 YEARS
     Route: 048

REACTIONS (6)
  - Vision blurred [Recovered/Resolved]
  - Fatigue [Recovering/Resolving]
  - Hypotonia [Recovering/Resolving]
  - Muscle rupture [Unknown]
  - Bursitis [Unknown]
  - Gait disturbance [Recovering/Resolving]

NARRATIVE: CASE EVENT DATE: 2020
